FAERS Safety Report 22007819 (Version 1)
Quarter: 2023Q1

REPORT INFORMATION
  Report Type: Spontaneous
  Country: CA (occurrence: CA)
  Receive Date: 20230218
  Receipt Date: 20230218
  Transmission Date: 20230417
  Serious: Yes (Other)
  Sender: FDA-Public Use
  Company Number: CA-002147023-NVSC2023CA033834

PATIENT

DRUGS (3)
  1. LORAZEPAM [Interacting]
     Active Substance: LORAZEPAM
     Indication: Parkinsonism
     Dosage: UNK
     Route: 065
  2. BUSPIRONE [Interacting]
     Active Substance: BUSPIRONE HYDROCHLORIDE
     Indication: Parkinsonism
     Dosage: UNK
     Route: 065
  3. ACETAMINOPHEN [Interacting]
     Active Substance: ACETAMINOPHEN
     Indication: Product used for unknown indication
     Dosage: UNK
     Route: 065

REACTIONS (3)
  - Somnolence [Unknown]
  - Balance disorder [Unknown]
  - Drug interaction [Unknown]
